FAERS Safety Report 21272987 (Version 5)
Quarter: 2022Q3

REPORT INFORMATION
  Report Type: Spontaneous
  Country: US (occurrence: US)
  Receive Date: 20220831
  Receipt Date: 20220929
  Transmission Date: 20221026
  Serious: No
  Sender: FDA-Public Use
  Company Number: US-UNITED THERAPEUTICS-UNT-2022-019789

PATIENT
  Sex: Female
  Weight: 74.83 kg

DRUGS (8)
  1. TREPROSTINIL [Suspect]
     Active Substance: TREPROSTINIL
     Indication: Pulmonary arterial hypertension
     Dosage: 16 ?G, QID
     Dates: start: 20220815
  2. TREPROSTINIL [Suspect]
     Active Substance: TREPROSTINIL
     Dosage: 48 ?G, QID
     Dates: start: 20220906
  3. TREPROSTINIL [Suspect]
     Active Substance: TREPROSTINIL
     Dosage: 64 ?G, QID
     Dates: start: 2022
  4. TREPROSTINIL [Suspect]
     Active Substance: TREPROSTINIL
     Dosage: 32 ?G
     Dates: start: 2022, end: 2022
  5. TREPROSTINIL [Suspect]
     Active Substance: TREPROSTINIL
     Dosage: 48 ?G
     Dates: start: 20220920
  6. TYVASO DPI [Suspect]
     Active Substance: TREPROSTINIL
     Indication: Pulmonary arterial hypertension
     Dosage: UNK
  7. TYVASO DPI [Suspect]
     Active Substance: TREPROSTINIL
     Indication: Pulmonary arterial hypertension
     Dosage: UNK
  8. TYVASO DPI [Suspect]
     Active Substance: TREPROSTINIL
     Indication: Pulmonary arterial hypertension
     Dosage: UNK

REACTIONS (14)
  - Cough [Unknown]
  - Dyspnoea [Unknown]
  - Heart rate decreased [Recovering/Resolving]
  - Hypotension [Unknown]
  - Headache [Unknown]
  - Decreased appetite [Unknown]
  - Fatigue [Unknown]
  - Pain in jaw [Unknown]
  - Neck pain [Unknown]
  - Myalgia [Unknown]
  - Gastrointestinal motility disorder [Unknown]
  - Malaise [Unknown]
  - Blood pressure systolic decreased [Unknown]
  - Dizziness postural [Unknown]

NARRATIVE: CASE EVENT DATE: 20220101
